FAERS Safety Report 22009529 (Version 1)
Quarter: 2023Q1

REPORT INFORMATION
  Report Type: Spontaneous
  Country: US (occurrence: US)
  Receive Date: 20230220
  Receipt Date: 20230220
  Transmission Date: 20230417
  Serious: No
  Sender: FDA-Public Use
  Company Number: US-GE HEALTHCARE-2022CSU009256

PATIENT
  Sex: Female
  Weight: 59 kg

DRUGS (3)
  1. OMNIPAQUE [Suspect]
     Active Substance: IOHEXOL
     Indication: Diagnostic procedure
     Dosage: UNK, SINGLE
     Route: 013
  2. OMNIPAQUE [Suspect]
     Active Substance: IOHEXOL
     Indication: Product used for unknown indication
  3. LABETALOL HYDROCHLORIDE [Concomitant]
     Active Substance: LABETALOL HYDROCHLORIDE
     Indication: Hypertensive urgency
     Dosage: 20 MG (100MG/10ML), SINGLE
     Route: 013
     Dates: start: 20221220, end: 20221220

REACTIONS (2)
  - Incorrect route of product administration [Recovered/Resolved]
  - No adverse event [Recovered/Resolved]
